FAERS Safety Report 24556356 (Version 1)
Quarter: 2024Q4

REPORT INFORMATION
  Report Type: Spontaneous
  Country: IN (occurrence: IN)
  Receive Date: 20241028
  Receipt Date: 20241028
  Transmission Date: 20250114
  Serious: Yes (Hospitalization)
  Sender: MYLAN
  Company Number: IN-MYLANLABS-2024M1097175

PATIENT
  Age: 58 Year
  Sex: Male

DRUGS (9)
  1. MOXIFLOXACIN [Suspect]
     Active Substance: MOXIFLOXACIN
     Indication: Pseudomonas infection
     Dosage: UNK UNK, Q2H
     Route: 065
  2. MOXIFLOXACIN [Suspect]
     Active Substance: MOXIFLOXACIN
     Indication: Scleritis
  3. CIPROFLOXACIN [Suspect]
     Active Substance: CIPROFLOXACIN
     Indication: Pseudomonas infection
     Dosage: 750 MILLIGRAM, BID
     Route: 065
  4. CIPROFLOXACIN [Suspect]
     Active Substance: CIPROFLOXACIN
     Indication: Scleritis
  5. TOBRAMYCIN [Suspect]
     Active Substance: TOBRAMYCIN\TOBRAMYCIN SULFATE
     Indication: Pseudomonas infection
     Dosage: UNK, QH
     Route: 061
  6. TOBRAMYCIN [Suspect]
     Active Substance: TOBRAMYCIN\TOBRAMYCIN SULFATE
     Indication: Scleritis
  7. AMIKACIN [Suspect]
     Active Substance: AMIKACIN
     Indication: Pseudomonas infection
     Dosage: UNK
     Route: 061
  8. AMIKACIN [Suspect]
     Active Substance: AMIKACIN
     Indication: Scleritis
  9. ATROPINE [Concomitant]
     Active Substance: ATROPINE
     Indication: Product used for unknown indication
     Dosage: UNK, TID (THRICE DAILY), DRUG CONTINUED
     Route: 065

REACTIONS (1)
  - Drug ineffective [Unknown]
